FAERS Safety Report 19799596 (Version 14)
Quarter: 2022Q1

REPORT INFORMATION
  Report Type: Report from Study
  Country: CH (occurrence: None)
  Receive Date: 20210907
  Receipt Date: 20220104
  Transmission Date: 20220423
  Serious: Yes (Hospitalization)
  Sender: FDA-Public Use
  Company Number: CH-EISAI MEDICAL RESEARCH-EC-2021-098861

PATIENT
  Age: 70 Year
  Sex: Male
  Weight: 61.9 kg

DRUGS (21)
  1. LENVATINIB [Suspect]
     Active Substance: LENVATINIB
     Indication: Pancreatic carcinoma
     Route: 048
     Dates: start: 20210810, end: 20210826
  2. LENVATINIB [Suspect]
     Active Substance: LENVATINIB
     Dosage: STARTING DOSE AT 20 MG, FLUCTUATED DOSAGE.
     Route: 048
     Dates: start: 20210831
  3. PEMBROLIZUMAB [Suspect]
     Active Substance: PEMBROLIZUMAB
     Indication: Pancreatic carcinoma
     Route: 041
     Dates: start: 20210810, end: 20210810
  4. PEMBROLIZUMAB [Suspect]
     Active Substance: PEMBROLIZUMAB
     Route: 041
     Dates: start: 20210901, end: 20210901
  5. PEMBROLIZUMAB [Suspect]
     Active Substance: PEMBROLIZUMAB
     Route: 041
     Dates: start: 20210921
  6. HELIXOR [Concomitant]
     Dates: start: 201701
  7. LISINOPRIL [Concomitant]
     Active Substance: LISINOPRIL
     Dates: start: 200601, end: 20210818
  8. PROSTAGUTT [Concomitant]
  9. FIASP [Concomitant]
     Active Substance: INSULIN ASPART
     Dates: start: 201701
  10. IMODIUM [Concomitant]
     Active Substance: LOPERAMIDE HYDROCHLORIDE
     Dates: start: 201701
  11. CREON [Concomitant]
     Active Substance: PANCRELIPASE AMYLASE\PANCRELIPASE LIPASE\PANCRELIPASE PROTEASE
     Dates: start: 201701
  12. LANTUS [Concomitant]
     Active Substance: INSULIN GLARGINE
     Dates: start: 201701
  13. ZINC GLUCONATE [Concomitant]
     Active Substance: ZINC GLUCONATE
  14. CALCIUM\CHOLECALCIFEROL [Concomitant]
     Active Substance: CALCIUM\CHOLECALCIFEROL
     Dates: start: 201801
  15. CHOLECALCIFEROL [Concomitant]
     Active Substance: CHOLECALCIFEROL
     Dates: start: 201801
  16. MAGNESIOCARD GRAPEFRUIT [Concomitant]
     Dates: start: 201808
  17. METAMIZOLE [Concomitant]
     Active Substance: METAMIZOLE
     Dates: start: 202101
  18. ADALAT [Concomitant]
     Active Substance: NIFEDIPINE
     Dates: start: 201001
  19. ZOLPIDEM [Concomitant]
     Active Substance: ZOLPIDEM TARTRATE
     Dates: start: 202001
  20. MOTILIUM [Concomitant]
     Active Substance: DOMPERIDONE
     Dates: start: 202108
  21. DAFALGAN [Concomitant]
     Active Substance: ACETAMINOPHEN
     Dates: start: 202101

REACTIONS (1)
  - Nausea [Recovered/Resolved]

NARRATIVE: CASE EVENT DATE: 20210815
